FAERS Safety Report 8630860 (Version 3)
Quarter: 2012Q4

REPORT INFORMATION
  Report Type: 
  Country: CA (occurrence: CA)
  Receive Date: 20120622
  Receipt Date: 20121224
  Transmission Date: 20130627
  Serious: Yes (Other)
  Sender: FDA-Public Use
  Company Number: PHHY2012CA052860

PATIENT
  Age: 59 Year
  Sex: Male

DRUGS (3)
  1. AFINITOR [Suspect]
     Indication: RENAL CELL CARCINOMA
     Dosage: 10 mg, daily
     Route: 048
     Dates: start: 20120217
  2. AFINITOR [Suspect]
     Dosage: 10 mg, daily
     Route: 048
  3. AFINITOR [Suspect]
     Dosage: 10 mg, daily
     Route: 048
     Dates: start: 20120220, end: 201206

REACTIONS (3)
  - Lung disorder [Unknown]
  - Pneumonitis [Recovering/Resolving]
  - Hypoaesthesia [Unknown]
